FAERS Safety Report 24845083 (Version 2)
Quarter: 2025Q3

REPORT INFORMATION
  Report Type: Spontaneous
  Country: US (occurrence: US)
  Receive Date: 20250115
  Receipt Date: 20250701
  Transmission Date: 20251021
  Serious: No
  Sender: MERCK SHARP & DOHME LLC
  Company Number: US-009507513-2412USA009681

PATIENT
  Sex: Female
  Weight: 88.254 kg

DRUGS (31)
  1. SOTATERCEPT [Suspect]
     Active Substance: SOTATERCEPT
  2. SOTATERCEPT [Suspect]
     Active Substance: SOTATERCEPT
  3. SOTATERCEPT [Suspect]
     Active Substance: SOTATERCEPT
  4. SOTATERCEPT [Suspect]
     Active Substance: SOTATERCEPT
  5. REMODULIN [Suspect]
     Active Substance: TREPROSTINIL
     Indication: Pulmonary arterial hypertension
     Route: 058
     Dates: start: 20221019
  6. ATORVASTATIN CALCIUM [Concomitant]
     Active Substance: ATORVASTATIN CALCIUM
  7. METOPROLOL TARTRATE [Concomitant]
     Active Substance: METOPROLOL TARTRATE
  8. TIZANIDINE HYDROCHLORIDE [Concomitant]
     Active Substance: TIZANIDINE HYDROCHLORIDE
  9. OXYCODONE HYDROCHLORIDE [Concomitant]
     Active Substance: OXYCODONE HYDROCHLORIDE
  10. BANOPHEN [Concomitant]
     Active Substance: DIPHENHYDRAMINE HYDROCHLORIDE
  11. BACLOFEN [Concomitant]
     Active Substance: BACLOFEN
  12. OPSUMIT [Concomitant]
     Active Substance: MACITENTAN
  13. BIFIDOBACTERIUM ANIMALIS LACTIS [Concomitant]
     Active Substance: BIFIDOBACTERIUM ANIMALIS LACTIS
  14. FLUOROMETHOLONE [Concomitant]
     Active Substance: FLUOROMETHOLONE
  15. LASIX [Concomitant]
     Active Substance: FUROSEMIDE
  16. OXYCONTIN [Concomitant]
     Active Substance: OXYCODONE HYDROCHLORIDE
  17. CALCIUM\VITAMIN D [Concomitant]
     Active Substance: CALCIUM\VITAMIN D
  18. FLONASE ALLERGY RELIEF [Concomitant]
     Active Substance: FLUTICASONE PROPIONATE
  19. SILDENAFIL [Concomitant]
     Active Substance: SILDENAFIL
  20. FISH OIL [Concomitant]
     Active Substance: FISH OIL
  21. HERBALS\TURMERIC [Concomitant]
     Active Substance: HERBALS\TURMERIC
  22. PREVACID [Concomitant]
     Active Substance: LANSOPRAZOLE
  23. IRON [Concomitant]
     Active Substance: IRON
  24. OXYGEN [Concomitant]
     Active Substance: OXYGEN
  25. GABAPENTIN [Concomitant]
     Active Substance: GABAPENTIN
  26. AMLODIPINE BESYLATE [Concomitant]
     Active Substance: AMLODIPINE BESYLATE
  27. ADVAIR HFA [Concomitant]
     Active Substance: FLUTICASONE PROPIONATE\SALMETEROL XINAFOATE
  28. ZYRTEC [Concomitant]
     Active Substance: CETIRIZINE HYDROCHLORIDE
  29. MUCINEX [Concomitant]
     Active Substance: GUAIFENESIN
  30. SINGULAIR [Concomitant]
     Active Substance: MONTELUKAST SODIUM
  31. lactobacillus reuteri (PROBIOTICA), [Concomitant]

REACTIONS (3)
  - Weight increased [Unknown]
  - Inappropriate schedule of product administration [Unknown]
  - Dyspnoea [Recovering/Resolving]
